FAERS Safety Report 9687189 (Version 5)
Quarter: 2019Q4

REPORT INFORMATION
  Report Type: Spontaneous
  Country: DE (occurrence: DE)
  Receive Date: 20131113
  Receipt Date: 20191122
  Transmission Date: 20200122
  Serious: Yes (Hospitalization, Congenital Anomaly, Other)
  Sender: FDA-Public Use
  Company Number: DE-MYLANLABS-2013S1024546

PATIENT
  Age: 24 Hour
  Sex: Male
  Weight: 2.86 kg

DRUGS (5)
  1. SUFENTANIL [Concomitant]
     Active Substance: SUFENTANIL
     Indication: PAIN
     Dosage: UNK
     Route: 064
     Dates: start: 20081020, end: 20081020
  2. LEVETIRACETAM. [Suspect]
     Active Substance: LEVETIRACETAM
     Dosage: 2250 MG/D(1000-250-1000) MG/DAY
     Route: 064
     Dates: start: 2008
  3. ROPIVACAINE                        /00986302/ [Concomitant]
     Active Substance: ROPIVACAINE HYDROCHLORIDE
     Indication: PAIN
     Dosage: UNK
     Route: 064
     Dates: start: 2008
  4. LEVETIRACETAM. [Suspect]
     Active Substance: LEVETIRACETAM
     Indication: EPILEPSY
     Dosage: 2250 MG/D(1000-250-1000) MG/DAY
     Route: 064
  5. LAMOTRIGINE. [Suspect]
     Active Substance: LAMOTRIGINE
     Indication: EPILEPSY
     Dosage: 400 MG (200-0-200) MG
     Route: 064
     Dates: start: 2008

REACTIONS (7)
  - Foetal exposure during pregnancy [Recovered/Resolved]
  - Patent ductus arteriosus [Recovered/Resolved]
  - Infantile apnoea [Recovered/Resolved]
  - Selective eating disorder [Recovered/Resolved]
  - Agitation neonatal [Recovered/Resolved]
  - Pneumonia [Recovered/Resolved]
  - Portal vein thrombosis [Recovered/Resolved]

NARRATIVE: CASE EVENT DATE: 2008
